FAERS Safety Report 7341837-9 (Version None)
Quarter: 2011Q1

REPORT INFORMATION
  Report Type: 
  Country: None (occurrence: None)
  Receive Date: 20110309
  Receipt Date: 20110224
  Transmission Date: 20110831
  Serious: Yes (Disabling)
  Sender: FDA-Public Use
  Company Number: CA-ELI_LILLY_AND_COMPANY-CA201102006840

PATIENT
  Sex: Male
  Weight: 96.1 kg

DRUGS (6)
  1. EFFEXOR [Concomitant]
     Dosage: 1 D/F, UNKNOWN
  2. SERZONE [Concomitant]
     Dosage: 200 MG, 2/D
     Route: 048
     Dates: start: 19990720
  3. SERTRALINE HYDROCHLORIDE [Concomitant]
  4. DIVALPROEX SODIUM [Concomitant]
  5. SERZONE [Concomitant]
     Dosage: 300 MG, 2/D
     Route: 048
  6. ZYPREXA [Suspect]
     Indication: SCHIZOAFFECTIVE DISORDER
     Dosage: 10 MG, EACH EVENING
     Route: 048
     Dates: start: 19980708

REACTIONS (5)
  - ERECTILE DYSFUNCTION [None]
  - IMPAIRED HEALING [None]
  - NEUROPATHY PERIPHERAL [None]
  - DIABETES MELLITUS [None]
  - DYSLIPIDAEMIA [None]
